FAERS Safety Report 12838026 (Version 1)
Quarter: 2016Q4

REPORT INFORMATION
  Report Type: Spontaneous
  Country: US (occurrence: US)
  Receive Date: 20161012
  Receipt Date: 20161012
  Transmission Date: 20170207
  Serious: No
  Sender: FDA-Public Use
  Company Number: US-PAR PHARMACEUTICAL, INC-2015SCPR015049

PATIENT

DRUGS (1)
  1. FENTANYL TRANSDERMAL SYSTEM [Suspect]
     Active Substance: FENTANYL
     Indication: PAIN MANAGEMENT
     Dosage: 1 PATCH, EVERY 72 HOURS
     Route: 062
     Dates: start: 20151226, end: 20151228

REACTIONS (8)
  - Application site pruritus [Recovering/Resolving]
  - Wrong technique in product usage process [Unknown]
  - Drug ineffective [Unknown]
  - Application site urticaria [Unknown]
  - Application site reaction [Unknown]
  - Product quality issue [Unknown]
  - Application site erythema [Recovered/Resolved]
  - Product adhesion issue [Unknown]

NARRATIVE: CASE EVENT DATE: 201512
